FAERS Safety Report 7055811-3 (Version None)
Quarter: 2010Q4

REPORT INFORMATION
  Report Type: 
  Country: None (occurrence: None)
  Receive Date: 20101021
  Receipt Date: 20101013
  Transmission Date: 20110411
  Serious: Yes (Death)
  Sender: FDA-Public Use
  Company Number: US-GILEAD-2010-0032546

PATIENT
  Sex: Female

DRUGS (25)
  1. LETAIRIS [Suspect]
     Indication: PULMONARY ARTERIAL HYPERTENSION
     Route: 048
     Dates: start: 20070825
  2. REMODULIN [Concomitant]
     Indication: PULMONARY ARTERIAL HYPERTENSION
     Dates: start: 20070907
  3. REVATIO [Concomitant]
  4. DILTIAZEM [Concomitant]
  5. PLO GEL [Concomitant]
  6. ALTACE [Concomitant]
  7. SOTALOL [Concomitant]
  8. DEXAMETHASONE [Concomitant]
  9. NOHIST-EXT [Concomitant]
  10. MEGACE [Concomitant]
  11. SYNTHROID [Concomitant]
  12. DIGOXIN [Concomitant]
  13. ZOFRAN [Concomitant]
  14. WARFARIN [Concomitant]
  15. POTASSIUM CHLORIDE [Concomitant]
  16. TRAMADOL [Concomitant]
  17. SPIRONOLACTONE [Concomitant]
  18. ACETAMINOPHEN [Concomitant]
  19. OXYGEN [Concomitant]
  20. FOSAMAX [Concomitant]
  21. LASIX [Concomitant]
  22. IMODIUM [Concomitant]
  23. LIPITOR [Concomitant]
  24. CALCIUM CARBONATE [Concomitant]
  25. ASPIRIN [Concomitant]

REACTIONS (1)
  - SHOCK [None]
